FAERS Safety Report 7383774-X (Version None)
Quarter: 2011Q1

REPORT INFORMATION
  Report Type: 
  Country: None (occurrence: None)
  Receive Date: 20110322
  Receipt Date: 20100316
  Transmission Date: 20110831
  Serious: Yes (Other)
  Sender: FDA-Public Use
  Company Number: 10-113

PATIENT
  Age: 37 Year
  Sex: Female

DRUGS (1)
  1. ALEVE [Suspect]
     Indication: PAIN IN EXTREMITY
     Dosage: 440 MG, DAILY, ORAL
     Route: 048
     Dates: start: 20100225, end: 20100201

REACTIONS (7)
  - LOSS OF CONSCIOUSNESS [None]
  - WHEEZING [None]
  - HYPERSENSITIVITY [None]
  - NAUSEA [None]
  - FALL [None]
  - SNORING [None]
  - FEELING HOT [None]
